FAERS Safety Report 19943426 (Version 4)
Quarter: 2022Q1

REPORT INFORMATION
  Report Type: Spontaneous
  Country: DE (occurrence: DE)
  Receive Date: 20211012
  Receipt Date: 20220117
  Transmission Date: 20220423
  Serious: Yes (Hospitalization, Disabling, Other)
  Sender: FDA-Public Use
  Company Number: DE-SANOFI-00800383

PATIENT
  Age: 7 Year
  Sex: Male
  Weight: 25.3 kg

DRUGS (3)
  1. DUPIXENT [Suspect]
     Active Substance: DUPILUMAB
     Indication: Dermatitis atopic
     Dosage: UNK
  2. DUPIXENT [Suspect]
     Active Substance: DUPILUMAB
     Indication: Neurodermatitis
     Dosage: 300 MG, QOW
     Route: 058
     Dates: start: 20210930, end: 20210930
  3. DUPIXENT [Suspect]
     Active Substance: DUPILUMAB
     Dosage: 300 MG, QOW
     Route: 058
     Dates: start: 20211029, end: 20211029

REACTIONS (21)
  - Gait inability [Unknown]
  - Headache [Unknown]
  - Arthralgia [Unknown]
  - Asthenia [Unknown]
  - Dyspnoea [Unknown]
  - Asthma [Unknown]
  - Headache [Unknown]
  - Dizziness [Unknown]
  - Vomiting [Unknown]
  - Pain in extremity [Unknown]
  - Peripheral swelling [Unknown]
  - Pyrexia [Unknown]
  - Glucose urine present [Unknown]
  - Dysstasia [Unknown]
  - Infection [Unknown]
  - C-reactive protein increased [Unknown]
  - Red blood cell sedimentation rate increased [Unknown]
  - Rash erythematous [Unknown]
  - Dermatitis atopic [Unknown]
  - Hypersensitivity [Unknown]
  - Product use issue [Unknown]

NARRATIVE: CASE EVENT DATE: 20210930
